FAERS Safety Report 19439286 (Version 1)
Quarter: 2021Q2

REPORT INFORMATION
  Report Type: Spontaneous
  Country: IT (occurrence: IT)
  Receive Date: 20210619
  Receipt Date: 20210619
  Transmission Date: 20210717
  Serious: Yes (Life-Threatening, Hospitalization, Other)
  Sender: FDA-Public Use
  Company Number: IT-ACCORD-228382

PATIENT
  Age: 55 Year
  Sex: Female

DRUGS (7)
  1. TRAMADOL. [Interacting]
     Active Substance: TRAMADOL
     Indication: PAIN
  2. TRAZODONE [Suspect]
     Active Substance: TRAZODONE HYDROCHLORIDE
     Indication: PAIN
  3. PARACETAMOL [Interacting]
     Active Substance: ACETAMINOPHEN
     Indication: PAIN
  4. BROMAZEPAM [Interacting]
     Active Substance: BROMAZEPAM
     Indication: PAIN
  5. CODEINE/PARACETAMOL [Interacting]
     Active Substance: ACETAMINOPHEN\CODEINE PHOSPHATE
     Indication: PAIN
  6. OXYCODONE/NALOXONE [Interacting]
     Active Substance: NALOXONE HYDROCHLORIDE\OXYCODONE HYDROCHLORIDE
     Indication: PAIN
  7. CARBAMAZEPINE. [Suspect]
     Active Substance: CARBAMAZEPINE
     Indication: PAIN

REACTIONS (13)
  - Hypokalaemia [Unknown]
  - Atrial fibrillation [Recovered/Resolved]
  - Drug level increased [Recovered/Resolved]
  - Hepatitis acute [Recovered/Resolved]
  - Coma [Recovered/Resolved]
  - Hypotension [Recovered/Resolved]
  - Bradycardia [Recovered/Resolved]
  - Lactic acidosis [Unknown]
  - Mydriasis [Unknown]
  - Drug interaction [Unknown]
  - Off label use [Unknown]
  - Overdose [Unknown]
  - Hypothermia [Recovered/Resolved]
